FAERS Safety Report 9808822 (Version 1)
Quarter: 2014Q1

REPORT INFORMATION
  Report Type: Spontaneous
  Country: US (occurrence: US)
  Receive Date: 20140110
  Receipt Date: 20140110
  Transmission Date: 20141002
  Serious: Yes (Death, Hospitalization)
  Sender: FDA-Public Use
  Company Number: US-BAYER-2014-002820

PATIENT
  Age: 43 Year
  Sex: Female

DRUGS (1)
  1. PARACETAMOL + DIPHENHYDRAMINE [Suspect]
     Indication: SUICIDE ATTEMPT
     Dosage: 96 DF, ONCE
     Route: 048

REACTIONS (7)
  - Toxicity to various agents [Fatal]
  - Hepatic necrosis [Fatal]
  - Haematuria [None]
  - Eye haemorrhage [None]
  - Brain oedema [None]
  - Pulmonary oedema [Fatal]
  - Intentional overdose [Fatal]
